FAERS Safety Report 6086633-8 (Version None)
Quarter: 2009Q1

REPORT INFORMATION
  Report Type: 
  Country: None (occurrence: None)
  Receive Date: 20090223
  Receipt Date: 20090212
  Transmission Date: 20090719
  Serious: Yes (Other)
  Sender: FDA-Public Use
  Company Number: US-AMGEN-QUU326991

PATIENT
  Sex: Female
  Weight: 52.7 kg

DRUGS (8)
  1. ENBREL [Suspect]
     Indication: RHEUMATOID ARTHRITIS
     Route: 058
     Dates: start: 20030924
  2. TUMS [Concomitant]
  3. GABAPENTIN [Concomitant]
  4. CALCIUM WITH VITAMIN D [Concomitant]
  5. ASPIRIN [Concomitant]
  6. MULTI-VITAMINS [Concomitant]
  7. ACETAMINOPHEN [Concomitant]
  8. SALSALATE [Concomitant]

REACTIONS (9)
  - ANAEMIA [None]
  - ARTHRALGIA [None]
  - CATARACT [None]
  - HYPERGAMMAGLOBULINAEMIA BENIGN MONOCLONAL [None]
  - INTERVERTEBRAL DISC OPERATION [None]
  - LIGHT CHAIN ANALYSIS INCREASED [None]
  - ROTATOR CUFF REPAIR [None]
  - SKIN LESION [None]
  - SPINAL LAMINECTOMY [None]
